FAERS Safety Report 9471369 (Version 1)
Quarter: 2013Q3

REPORT INFORMATION
  Report Type: Spontaneous
  Country: US (occurrence: US)
  Receive Date: 20130822
  Receipt Date: 20130822
  Transmission Date: 20140515
  Serious: Yes (Other)
  Sender: FDA-Public Use
  Company Number: US-TEVA-427727USA

PATIENT
  Age: 24 Year
  Sex: Female
  Weight: 84.44 kg

DRUGS (1)
  1. PARAGARD 380A [Suspect]
     Indication: CONTRACEPTION
     Route: 015
     Dates: start: 20130801, end: 20130806

REACTIONS (3)
  - Vaginal haemorrhage [Recovered/Resolved]
  - Uterine perforation [Recovered/Resolved]
  - Muscle spasms [Recovered/Resolved]
